FAERS Safety Report 8803377 (Version 1)
Quarter: 2012Q4

REPORT INFORMATION
  Report Type: 
  Country: US (occurrence: US)
  Receive Date: 20120924
  Receipt Date: 20120924
  Transmission Date: 20130627
  Serious: Yes (Other)
  Sender: FDA-Public Use
  Company Number: US-PFIZER INC-2012234032

PATIENT
  Age: 7 Year
  Sex: Male
  Weight: 27.67 kg

DRUGS (2)
  1. CHILDREN^S MOTRIN [Suspect]
     Indication: TYPE 1 DIABETES MELLITUS
     Dosage: 12.5ml or 2 and 1/2 teaspoon, 1 dose in the night and one dose in the morning (250 mg)
     Route: 048
     Dates: start: 20120911, end: 20120912
  2. NOVOLOG [Concomitant]
     Indication: BLOOD GLUCOSE INCREASED
     Route: 065

REACTIONS (2)
  - Blood glucose increased [Recovered/Resolved]
  - Product label issue [Unknown]
